FAERS Safety Report 8950463 (Version 1)
Quarter: 2012Q4

REPORT INFORMATION
  Report Type: 
  Country: US (occurrence: US)
  Receive Date: 20121207
  Receipt Date: 20121207
  Transmission Date: 20130627
  Serious: No
  Sender: FDA-Public Use
  Company Number: US-PFIZER INC-2012305002

PATIENT
  Age: 30 Year
  Sex: Male
  Weight: 82 kg

DRUGS (2)
  1. PRISTIQ [Suspect]
     Indication: DEPRESSION
     Dosage: UNK
     Dates: start: 201211
  2. PRISTIQ [Suspect]
     Indication: ANXIETY

REACTIONS (1)
  - Hyperhidrosis [Not Recovered/Not Resolved]
